FAERS Safety Report 4958360-9 (Version None)
Quarter: 2006Q1

REPORT INFORMATION
  Report Type: 
  Country: None (occurrence: None)
  Receive Date: 20060330
  Receipt Date: 20050228
  Transmission Date: 20060701
  Serious: Yes (Hospitalization)
  Sender: FDA-Public Use
  Company Number: JP-AVENTIS-200610267JP

PATIENT
  Age: 31 Year
  Sex: Female

DRUGS (2)
  1. LANTUS [Suspect]
     Indication: DIABETES MELLITUS INSULIN-DEPENDENT
     Route: 058
     Dates: start: 20040119
  2. NOVORAPID [Concomitant]
     Dates: start: 20040119

REACTIONS (7)
  - BREECH PRESENTATION [None]
  - CAESAREAN SECTION [None]
  - DRUG EXPOSURE DURING PREGNANCY [None]
  - HYPOGLYCAEMIA NEONATAL [None]
  - LARGE FOR DATES BABY [None]
  - PREGNANCY [None]
  - THREATENED LABOUR [None]
